FAERS Safety Report 4557167-4 (Version None)
Quarter: 2005Q2

REPORT INFORMATION
  Report Type: 
  Country: None (occurrence: None)
  Receive Date: 20050114
  Receipt Date: 20050107
  Transmission Date: 20051028
  Serious: Yes (Hospitalization, Other)
  Sender: FDA-Public Use
  Company Number: KII-2005-0014577

PATIENT
  Age: 50 Year
  Sex: Female

DRUGS (10)
  1. HYDROMORPHONE HCL [Suspect]
     Indication: PAIN
     Dosage: SEE TEXT
  2. HYDROCODONE (HYDROCODONE) [Suspect]
     Indication: PAIN
     Dosage: SEE TEXT
  3. BENZODIAZEPINE DERIVATIVES() [Suspect]
     Dosage: SEE TEXT; ORAL
     Route: 048
  4. ANTIPSYCHOTICS () [Suspect]
     Dosage: SEE TEXT; ORAL
     Route: 048
  5. ANTIEPILEPTICS () [Suspect]
     Dosage: ORAL
     Route: 048
  6. ANTIDEPRESSANTS () [Suspect]
     Dosage: ORAL
     Route: 048
  7. ANTIHISTAMINES FOR SYSTEMIC USE () [Suspect]
     Dosage: ORAL
     Route: 048
  8. DECONGESTANTS AND ANTIALLERGICS () [Suspect]
     Dosage: ORAL
     Route: 048
  9. ORAL ANTIDIABETICS () [Suspect]
     Dosage: ORAL
     Route: 048
  10. OTHER TYPE OF GASTROINTESTINAL PREPARATION () [Suspect]
     Dosage: ORAL
     Route: 048

REACTIONS (28)
  - AGGRESSION [None]
  - ASPARTATE AMINOTRANSFERASE INCREASED [None]
  - BLOOD ALKALINE PHOSPHATASE INCREASED [None]
  - BLOOD AMYLASE INCREASED [None]
  - BLOOD CREATININE INCREASED [None]
  - BLOOD GLUCOSE INCREASED [None]
  - BLOOD PH DECREASED [None]
  - BLOOD POTASSIUM INCREASED [None]
  - BLOOD PRESSURE SYSTOLIC INCREASED [None]
  - BODY TEMPERATURE INCREASED [None]
  - COMA [None]
  - CONVULSION [None]
  - CORNEAL ABRASION [None]
  - CORNEAL REFLEX DECREASED [None]
  - DYSKINESIA [None]
  - EMOTIONAL DISTRESS [None]
  - HEART RATE INCREASED [None]
  - NERVOUSNESS [None]
  - PAIN [None]
  - PCO2 INCREASED [None]
  - PO2 DECREASED [None]
  - PROTHROMBIN TIME PROLONGED [None]
  - PUPILS UNEQUAL [None]
  - REFLEXES ABNORMAL [None]
  - RESPIRATION ABNORMAL [None]
  - RESTLESSNESS [None]
  - SOCIAL AVOIDANT BEHAVIOUR [None]
  - WHITE BLOOD CELL COUNT INCREASED [None]
